FAERS Safety Report 5404614-1 (Version None)
Quarter: 2007Q3

REPORT INFORMATION
  Report Type: 
  Country: None (occurrence: None)
  Receive Date: 20070713
  Receipt Date: 20070424
  Transmission Date: 20080115
  Serious: Yes (Hospitalization)
  Sender: FDA-Public Use
  Company Number: US-JNJFOC-20060400338

PATIENT
  Age: 16 Year
  Sex: Female
  Weight: 137.5 kg

DRUGS (1)
  1. ORTHO EVRA [Suspect]
     Indication: CONTRACEPTION
     Dosage: 3 DOSE(S), 1 IN 4 WEEK

REACTIONS (1)
  - CARDIAC VALVE REPLACEMENT COMPLICATION [None]
